FAERS Safety Report 24751001 (Version 2)
Quarter: 2024Q4

REPORT INFORMATION
  Report Type: Spontaneous
  Country: US (occurrence: US)
  Receive Date: 20241219
  Receipt Date: 20241219
  Transmission Date: 20250114
  Serious: No
  Sender: NOVARTIS
  Company Number: US-002147023-NVSC2024US240426

PATIENT
  Sex: Male

DRUGS (2)
  1. ALPELISIB [Suspect]
     Active Substance: ALPELISIB
     Indication: PIK3CA related overgrowth spectrum
     Dosage: 125 MG, QD (CAPSULE)
     Route: 048
     Dates: start: 2024, end: 2024
  2. ALPELISIB [Suspect]
     Active Substance: ALPELISIB
     Dosage: 50 MG, QD (CAPSULE)
     Route: 048
     Dates: start: 2024, end: 2024

REACTIONS (2)
  - Gastrointestinal disorder [Unknown]
  - Fatigue [Unknown]
